FAERS Safety Report 7676740-8 (Version None)
Quarter: 2011Q3

REPORT INFORMATION
  Report Type: 
  Country: None (occurrence: None)
  Receive Date: 20110811
  Receipt Date: 20110810
  Transmission Date: 20111222
  Serious: Yes (Hospitalization)
  Sender: FDA-Public Use
  Company Number: BR-BRISTOL-MYERS SQUIBB COMPANY-15919426

PATIENT
  Age: 40 Year
  Sex: Male

DRUGS (4)
  1. METHADONE HYDROCHLORIDE [Concomitant]
  2. BROMAZEPAM [Concomitant]
  3. IPILIMUMAB [Suspect]
     Indication: MALIGNANT MELANOMA
     Dosage: 1DF=26100.UNIT NOT SPECIFIED
     Route: 042
     Dates: start: 20110630
  4. GABAPENTIN [Concomitant]

REACTIONS (1)
  - HYPERCALCAEMIA [None]
